FAERS Safety Report 8405318-3 (Version None)
Quarter: 2012Q2

REPORT INFORMATION
  Report Type: 
  Country: None (occurrence: None)
  Receive Date: 20120604
  Receipt Date: 20120522
  Transmission Date: 20120825
  Serious: Yes (Hospitalization, Other)
  Sender: FDA-Public Use
  Company Number: US-BRISTOL-MYERS SQUIBB COMPANY-16450157

PATIENT
  Age: 41 Year
  Sex: Female
  Weight: 94 kg

DRUGS (3)
  1. METFORMIN HCL [Suspect]
     Indication: DIABETES MELLITUS
  2. ONGLYZA [Suspect]
     Indication: DIABETES MELLITUS
     Dates: start: 20120125, end: 20120302
  3. TYLENOL W/ CODEINE NO. 3 [Suspect]

REACTIONS (4)
  - DRUG-INDUCED LIVER INJURY [None]
  - VERTIGO [None]
  - DEHYDRATION [None]
  - NEPHROLITHIASIS [None]
